FAERS Safety Report 6159081-X (Version None)
Quarter: 2009Q2

REPORT INFORMATION
  Report Type: 
  Country: None (occurrence: None)
  Receive Date: 20090417
  Receipt Date: 20090401
  Transmission Date: 20091009
  Serious: Yes (Death)
  Sender: FDA-Public Use
  Company Number: PHBS2008CN06262

PATIENT
  Age: 76 Year
  Sex: Male

DRUGS (4)
  1. PHENTOLAMINE MESYLATE [Suspect]
     Indication: BRONCHITIS CHRONIC
     Dosage: 20 MG, ONCE/SINGLE
     Route: 041
     Dates: start: 20030726, end: 20030726
  2. 5%GLUCOSE 20ML+LANATOSIDE C INJECTION 0.4MG [Concomitant]
  3. FUROSEMIDE [Concomitant]
  4. 5% GLUCOSE 250ML+AMINOPHYLLINE 0.25MG+DEXAMETHASONE 5MG [Concomitant]
     Route: 041

REACTIONS (6)
  - BLOODY DISCHARGE [None]
  - CYANOSIS [None]
  - DEATH [None]
  - MOUTH BREATHING [None]
  - NASAL CONGESTION [None]
  - RESTLESSNESS [None]
